FAERS Safety Report 6997102-2 (Version None)
Quarter: 2010Q3

REPORT INFORMATION
  Report Type: 
  Country: None (occurrence: None)
  Receive Date: 20100918
  Receipt Date: 20091022
  Transmission Date: 20110219
  Serious: No
  Sender: FDA-Public Use
  Company Number: US-WYE-H10851109

PATIENT
  Sex: Female
  Weight: 77.18 kg

DRUGS (4)
  1. PREMPRO [Suspect]
     Indication: HORMONE REPLACEMENT THERAPY
     Dosage: 0.3MG/1.5MG DAILY
     Route: 048
     Dates: start: 20050101, end: 20090904
  2. LUNESTA [Concomitant]
  3. CITALOPRAM HYDROBROMIDE [Concomitant]
  4. SYNTHROID [Concomitant]

REACTIONS (2)
  - HEADACHE [None]
  - PRODUCT QUALITY ISSUE [None]
